FAERS Safety Report 9912725 (Version 2)
Quarter: 2014Q1

REPORT INFORMATION
  Report Type: Spontaneous
  Country: US (occurrence: US)
  Receive Date: 20140220
  Receipt Date: 20140306
  Transmission Date: 20141002
  Serious: Yes (Hospitalization)
  Sender: FDA-Public Use
  Company Number: US-PFIZER INC-2014047116

PATIENT
  Age: 48 Year
  Sex: Female
  Weight: 63.95 kg

DRUGS (5)
  1. LYRICA [Suspect]
     Indication: DIABETIC NEUROPATHY
     Dosage: 100 MG, 2X/DAY
     Route: 048
     Dates: start: 201310
  2. LYRICA [Suspect]
     Dosage: 100 MG, 3X/DAY
     Route: 048
     Dates: start: 201310
  3. LYRICA [Suspect]
     Dosage: 100 MG, 1X/DAY
     Route: 048
  4. HUMULIN 70/30 [Concomitant]
     Indication: DIABETES MELLITUS
     Dosage: UNK, 3X/DAY (AT A SLIDING SCALE AT AN UNKNOWN DOSE )
  5. AMARYL [Concomitant]
     Indication: DIABETES MELLITUS
     Dosage: 4 MG, 2X/DAY

REACTIONS (5)
  - Neuralgia [Not Recovered/Not Resolved]
  - Pain in extremity [Not Recovered/Not Resolved]
  - Local swelling [Not Recovered/Not Resolved]
  - Burning sensation [Not Recovered/Not Resolved]
  - Paraesthesia [Not Recovered/Not Resolved]
